FAERS Safety Report 14775247 (Version 12)
Quarter: 2020Q3

REPORT INFORMATION
  Report Type: Spontaneous
  Country: US (occurrence: US)
  Receive Date: 20180418
  Receipt Date: 20200930
  Transmission Date: 20201102
  Serious: Yes (Other)
  Sender: FDA-Public Use
  Company Number: US-PFIZER INC-2018154480

PATIENT
  Age: 75 Year
  Sex: Female

DRUGS (10)
  1. LYRICA [Suspect]
     Active Substance: PREGABALIN
     Indication: FIBROMYALGIA
     Dosage: 25 MG, 2X/DAY
     Dates: start: 20180408
  2. LYRICA [Suspect]
     Active Substance: PREGABALIN
     Indication: ARTHRALGIA
     Dosage: 50 MG, 1X/DAY (AT BEDTIME)
     Route: 048
  3. BONIVA [Concomitant]
     Active Substance: IBANDRONATE SODIUM
     Dosage: UNK
  4. KEFLEX [Concomitant]
     Active Substance: CEPHALEXIN
     Dosage: 500 MG
  5. LYRICA [Suspect]
     Active Substance: PREGABALIN
     Indication: BURSITIS
     Dosage: 3 DF, DAILY (TAKING 2 AT BEDTIME AND ONE DURING THE DAY)
  6. CULTURELLE [Concomitant]
     Active Substance: LACTOBACILLUS RHAMNOSUS
     Dosage: UNK
  7. LYRICA [Suspect]
     Active Substance: PREGABALIN
     Indication: ARTHRALGIA
  8. LYRICA [Suspect]
     Active Substance: PREGABALIN
     Indication: MYOFASCIAL PAIN SYNDROME
     Dosage: 300 MG
  9. LYRICA [Suspect]
     Active Substance: PREGABALIN
     Indication: REPETITIVE STRAIN INJURY
  10. LYRICA [Suspect]
     Active Substance: PREGABALIN
     Indication: SOFT TISSUE DISORDER

REACTIONS (13)
  - Confusional state [Recovering/Resolving]
  - Limb discomfort [Unknown]
  - Loss of personal independence in daily activities [Unknown]
  - Antinuclear antibody increased [Unknown]
  - Fall [Unknown]
  - Nasal injury [Unknown]
  - Somnolence [Unknown]
  - Escherichia infection [Unknown]
  - Therapeutic product effect incomplete [Unknown]
  - Insomnia [Not Recovered/Not Resolved]
  - Palpitations [Unknown]
  - Pain [Unknown]
  - Intentional product misuse [Unknown]

NARRATIVE: CASE EVENT DATE: 201804
